FAERS Safety Report 18566673 (Version 1)
Quarter: 2020Q4

REPORT INFORMATION
  Report Type: Spontaneous
  Country: GB (occurrence: GB)
  Receive Date: 20201201
  Receipt Date: 20201201
  Transmission Date: 20210114
  Serious: Yes (Disabling)
  Sender: FDA-Public Use
  Company Number: GB-TEVA-2020-GB-1852439

PATIENT
  Age: 20 Year
  Sex: Female
  Weight: 71 kg

DRUGS (3)
  1. PROPRANOLOL [Concomitant]
     Active Substance: PROPRANOLOL HYDROCHLORIDE
     Dosage: 60MG
  2. FERROUS SULFATE. [Concomitant]
     Active Substance: FERROUS SULFATE
     Dosage: 200MG
  3. QUETIAPINE. [Suspect]
     Active Substance: QUETIAPINE
     Indication: ANXIETY
     Dosage: 75MG
     Route: 048
     Dates: start: 20200428, end: 20201021

REACTIONS (5)
  - Tardive dyskinesia [Not Recovered/Not Resolved]
  - Dystonia [Unknown]
  - Muscle twitching [Unknown]
  - Oculogyric crisis [Unknown]
  - Blepharospasm [Unknown]

NARRATIVE: CASE EVENT DATE: 20201019
